FAERS Safety Report 5046889-7 (Version None)
Quarter: 2006Q2

REPORT INFORMATION
  Report Type: 
  Country: None (occurrence: None)
  Receive Date: 20060630
  Receipt Date: 20060616
  Transmission Date: 20061013
  Serious: Yes (Death)
  Sender: FDA-Public Use
  Company Number: 111056ISR

PATIENT
  Sex: Male

DRUGS (12)
  1. CITALOPRAM HYDROBROMIDE [Suspect]
  2. SALBUTAMOL [Suspect]
  3. ZOPICLONE [Suspect]
  4. LOSARTAN POSTASSIUM [Suspect]
  5. MOMETASONE FUROATE [Suspect]
  6. NYSTATIN [Suspect]
  7. OXYGEN [Suspect]
  8. PHOLCODINE [Suspect]
  9. COMBIVENT [Suspect]
  10. SERETIDE (FLUTICASONE PROPIONATE AND SALMETEROL XINAFOATE) [Suspect]
  11. SPIRIVA [Suspect]
     Dosage: RESPIRATORY
     Route: 055
  12. LATANOPROST [Suspect]

REACTIONS (1)
  - CHRONIC OBSTRUCTIVE PULMONARY DISEASE [None]
